FAERS Safety Report 8924372 (Version 1)
Quarter: 2012Q4

REPORT INFORMATION
  Report Type: 
  Country: US (occurrence: US)
  Receive Date: 20121126
  Receipt Date: 20121126
  Transmission Date: 20130627
  Serious: No
  Sender: FDA-Public Use
  Company Number: US-MYLANLABS-2012S1002618

PATIENT
  Sex: Male

DRUGS (2)
  1. CLONAZEPAM [Suspect]
     Indication: ANXIETY
     Route: 048
  2. CITALOPRAM [Suspect]
     Route: 048

REACTIONS (2)
  - Alcohol interaction [Recovered/Resolved]
  - Blood alcohol increased [Recovered/Resolved]
